FAERS Safety Report 5160958-2 (Version None)
Quarter: 2006Q4

REPORT INFORMATION
  Report Type: 
  Country: None (occurrence: None)
  Receive Date: 20061130
  Receipt Date: 20060221
  Transmission Date: 20070319
  Serious: No
  Sender: FDA-Public Use
  Company Number: US-BRISTOL-MYERS SQUIBB COMPANY-13289517

PATIENT
  Sex: Female

DRUGS (2)
  1. AVALIDE [Suspect]
     Indication: HYPERTENSION
     Dosage: INITIATED IN JAN-2006 AT 150 MG DAILY ONE WEEK LATER INCREASED TO 300 MG DAILY
     Dates: start: 20060101
  2. VITAMINS [Concomitant]

REACTIONS (1)
  - COUGH [None]
